FAERS Safety Report 5235789-5 (Version None)
Quarter: 2007Q1

REPORT INFORMATION
  Report Type: 
  Country: None (occurrence: None)
  Receive Date: 20070212
  Receipt Date: 20070130
  Transmission Date: 20070707
  Serious: Yes (Hospitalization)
  Sender: FDA-Public Use
  Company Number: JP-MERCK-0701USA03183

PATIENT
  Age: 48 Year
  Sex: Male

DRUGS (1)
  1. SINGULAIR [Suspect]
     Indication: ASTHMA
     Route: 048
     Dates: start: 20040301

REACTIONS (1)
  - ALLERGIC GRANULOMATOUS ANGIITIS [None]
